FAERS Safety Report 7245684-8 (Version None)
Quarter: 2011Q1

REPORT INFORMATION
  Report Type: 
  Country: None (occurrence: None)
  Receive Date: 20110126
  Receipt Date: 20110118
  Transmission Date: 20110831
  Serious: Yes (Other)
  Sender: FDA-Public Use
  Company Number: CA-JNJFOC-20100603960

PATIENT
  Sex: Female
  Weight: 55 kg

DRUGS (4)
  1. REMICADE [Suspect]
     Indication: CROHN'S DISEASE
     Route: 042
  2. REMICADE [Suspect]
     Route: 042
  3. BUSCOPAN [Concomitant]
  4. PREDNISONE [Concomitant]

REACTIONS (1)
  - COLECTOMY [None]
